FAERS Safety Report 6489604-2 (Version None)
Quarter: 2009Q4

REPORT INFORMATION
  Report Type: 
  Country: None (occurrence: None)
  Receive Date: 20091207
  Receipt Date: 20091123
  Transmission Date: 20100525
  Serious: Yes (Death, Hospitalization)
  Sender: FDA-Public Use
  Company Number: 2009AC000319

PATIENT
  Age: 73 Year
  Sex: Male

DRUGS (7)
  1. DIGOXIN [Suspect]
     Dosage: 0.25 MG; QD; PO
     Route: 048
  2. COLACE [Concomitant]
  3. FERROUS SULFATE TAB [Concomitant]
  4. LOPRESSOR [Concomitant]
  5. FLOMAX [Concomitant]
  6. ZOCOR [Concomitant]
  7. COUMADIN [Concomitant]

REACTIONS (18)
  - AORTIC ANEURYSM [None]
  - ARTERIOSCLEROSIS [None]
  - ASBESTOSIS [None]
  - ATRIAL FIBRILLATION [None]
  - CARDIOMYOPATHY [None]
  - CORONARY ARTERY DISEASE [None]
  - ECONOMIC PROBLEM [None]
  - EJECTION FRACTION DECREASED [None]
  - FACE INJURY [None]
  - FIBROSIS [None]
  - HYPERLIPIDAEMIA [None]
  - HYPERTENSION [None]
  - INJURY [None]
  - INTERSTITIAL LUNG DISEASE [None]
  - LEFT VENTRICULAR HYPERTROPHY [None]
  - OEDEMA PERIPHERAL [None]
  - SYNCOPE [None]
  - VENTRICULAR TACHYCARDIA [None]
